FAERS Safety Report 13679611 (Version 2)
Quarter: 2018Q2

REPORT INFORMATION
  Report Type: Spontaneous
  Country: US (occurrence: US)
  Receive Date: 20170622
  Receipt Date: 20180416
  Transmission Date: 20180711
  Serious: Yes (Hospitalization, Disabling, Other)
  Sender: FDA-Public Use
  Company Number: US-TEVA-779762USA

PATIENT
  Sex: Male
  Weight: 90.8 kg

DRUGS (7)
  1. FLOMAX [Concomitant]
     Active Substance: TAMSULOSIN HYDROCHLORIDE
     Indication: PROSTATIC DISORDER
  2. WARFARIN [Concomitant]
     Active Substance: WARFARIN
     Indication: THROMBOSIS
  3. LORAZEPAM. [Concomitant]
     Active Substance: LORAZEPAM
  4. ACTIQ [Suspect]
     Active Substance: FENTANYL CITRATE
     Indication: COMPLEX REGIONAL PAIN SYNDROME
     Dosage: 1 LOZENGE UP TO 3 TIMES A DAY AS DIRECTED
     Route: 048
     Dates: start: 2007
  5. NORVASC [Concomitant]
     Active Substance: AMLODIPINE BESYLATE
     Indication: HYPERTENSION
  6. AMBIEN [Concomitant]
     Active Substance: ZOLPIDEM TARTRATE
  7. METHADONE [Concomitant]
     Active Substance: METHADONE HYDROCHLORIDE
     Dosage: 2 TABLETS BY MOUTH UP TO 3 TIMES A DAY AND LESS IF POSSIBLE
     Route: 048

REACTIONS (7)
  - Intestinal obstruction [Not Recovered/Not Resolved]
  - Memory impairment [Unknown]
  - Intestinal perforation [Recovered/Resolved]
  - Proctalgia [Not Recovered/Not Resolved]
  - Product use in unapproved indication [Unknown]
  - Disability [Unknown]
  - Gastrointestinal pain [Not Recovered/Not Resolved]

NARRATIVE: CASE EVENT DATE: 2007
